FAERS Safety Report 5919194-1 (Version None)
Quarter: 2008Q4

REPORT INFORMATION
  Report Type: 
  Country: None (occurrence: None)
  Receive Date: 20081015
  Receipt Date: 20081003
  Transmission Date: 20090506
  Serious: Yes (Life-Threatening, Hospitalization)
  Sender: FDA-Public Use
  Company Number: GB-ROCHE-582763

PATIENT
  Sex: Female
  Weight: 48 kg

DRUGS (7)
  1. XELODA [Suspect]
     Dosage: ENTERED AS 1GRAM/M2. 14 DAY CYCLES.
     Route: 048
     Dates: start: 20080801, end: 20080814
  2. MORPHINE SULFATE [Concomitant]
     Indication: ANALGESIA
     Dosage: 80 (NO UNITS PROVIDED) BD
     Route: 048
     Dates: start: 20070101
  3. IBUPROFEN TABLETS [Concomitant]
     Indication: ANALGESIA
     Dosage: DOSE REPORTED AS 400 (NO UNITS PROVIDED)
     Route: 048
     Dates: start: 20070101, end: 20080814
  4. LANSOPRAZOLE [Concomitant]
     Indication: ANTACID THERAPY
     Dosage: REPORTED AS LANSOPROZOLE, DOSE 30, NO UNITS PROVIDED.
     Route: 048
     Dates: start: 20070101
  5. ZOLEDRONIC ACID [Concomitant]
     Dosage: DOSE REPORTED AS 4, NO UNITS PROVIDED, DRUG NAME REPORTED AS ZOLDRONATE.
     Route: 042
     Dates: start: 20061201
  6. GABAPENTIN [Concomitant]
     Indication: ANALGESIA
     Dates: start: 20070101
  7. CLONAZEPAM [Concomitant]
     Indication: SLEEP DISORDER THERAPY
     Dosage: 1 MG NOCTE

REACTIONS (1)
  - DISSEMINATED INTRAVASCULAR COAGULATION [None]
